FAERS Safety Report 10382242 (Version 3)
Quarter: 2014Q3

REPORT INFORMATION
  Report Type: Spontaneous
  Country: CN (occurrence: CN)
  Receive Date: 20140813
  Receipt Date: 20140827
  Transmission Date: 20150326
  Serious: Yes (Death, Hospitalization, Other)
  Sender: FDA-Public Use
  Company Number: CN-ELI_LILLY_AND_COMPANY-CN201408004685

PATIENT
  Age: 62 Year
  Sex: Female

DRUGS (5)
  1. GLUTATHIONE [Concomitant]
     Active Substance: GLUTATHIONE
     Dosage: UNK, UNKNOWN
     Route: 065
  2. GEMCITABINE HYDROCHLORIDE. [Suspect]
     Active Substance: GEMCITABINE HYDROCHLORIDE
     Indication: PANCREATIC CARCINOMA
     Dosage: UNK, UNKNOWN
     Route: 042
     Dates: start: 20130515
  3. LEUCOGEN [Concomitant]
     Active Substance: LEUCOGEN
     Dosage: UNK, UNKNOWN
     Route: 065
  4. CAPECITABINE [Concomitant]
     Active Substance: CAPECITABINE
     Indication: PANCREATIC CARCINOMA
     Dosage: UNK, UNKNOWN
     Route: 048
  5. DOPAMINE [Concomitant]
     Active Substance: DOPAMINE\DOPAMINE HYDROCHLORIDE
     Dosage: UNK, UNKNOWN

REACTIONS (9)
  - Infection [Unknown]
  - Death [Fatal]
  - Pancreatitis acute [Unknown]
  - Coma [Unknown]
  - Hypovolaemic shock [Unknown]
  - Bone marrow failure [Unknown]
  - Hepatic failure [Unknown]
  - Hypoxia [Unknown]
  - Renal failure [Unknown]

NARRATIVE: CASE EVENT DATE: 20130530
